FAERS Safety Report 12478042 (Version 6)
Quarter: 2016Q4

REPORT INFORMATION
  Report Type: Spontaneous
  Country: US (occurrence: US)
  Receive Date: 20160617
  Receipt Date: 20161123
  Transmission Date: 20170207
  Serious: No
  Sender: FDA-Public Use
  Company Number: US-INCYTE CORPORATION-2016IN003455

PATIENT
  Age: 62 Year
  Sex: Female

DRUGS (6)
  1. JAKAFI [Suspect]
     Active Substance: RUXOLITINIB
     Indication: MYELOFIBROSIS
     Dosage: 10 MG, BID
     Route: 048
     Dates: start: 20160205, end: 20160722
  2. ANAGRELIDE [Concomitant]
     Active Substance: ANAGRELIDE
     Indication: PRODUCT USED FOR UNKNOWN INDICATION
  3. HYDROXYUREA. [Suspect]
     Active Substance: HYDROXYUREA
     Indication: PRODUCT USED FOR UNKNOWN INDICATION
     Dosage: NOT SPECIFIED
  4. JAKAFI [Suspect]
     Active Substance: RUXOLITINIB
     Dosage: 10 MG, BID
     Route: 048
     Dates: end: 20161028
  5. ASPIRIN                            /00002701/ [Concomitant]
     Active Substance: ASPIRIN
     Indication: PRODUCT USED FOR UNKNOWN INDICATION
  6. HYDROXYUREA. [Suspect]
     Active Substance: HYDROXYUREA
     Dosage: NOT SPECIFIED
     Dates: start: 2016

REACTIONS (18)
  - Dry mouth [Unknown]
  - Asthenia [Unknown]
  - Nail discolouration [Unknown]
  - Skin discolouration [Unknown]
  - Drug dose omission [Unknown]
  - Fatigue [Unknown]
  - Somnolence [Unknown]
  - Peripheral swelling [Unknown]
  - Platelet count increased [Unknown]
  - Anaemia [Unknown]
  - Dry throat [Unknown]
  - Full blood count decreased [Unknown]
  - Mass [Not Recovered/Not Resolved]
  - Local swelling [Unknown]
  - Pain [Not Recovered/Not Resolved]
  - Dizziness [Unknown]
  - Thrombosis [Not Recovered/Not Resolved]
  - Contusion [Not Recovered/Not Resolved]

NARRATIVE: CASE EVENT DATE: 20160622
